FAERS Safety Report 8027814-3 (Version None)
Quarter: 2012Q1

REPORT INFORMATION
  Report Type: 
  Country: None (occurrence: None)
  Receive Date: 20120106
  Receipt Date: 20120104
  Transmission Date: 20120608
  Serious: Yes (Hospitalization, Other)
  Sender: FDA-Public Use
  Company Number: BR-ABBOTT-11P-020-0719215-00

PATIENT
  Sex: Female
  Weight: 80 kg

DRUGS (4)
  1. AMITRIPTYLINE HCL [Concomitant]
     Indication: PRODUCT USED FOR UNKNOWN INDICATION
     Dosage: DAILY DOSE 2 TABLETS
     Route: 048
  2. DEPAKOTE [Suspect]
     Indication: PRODUCT USED FOR UNKNOWN INDICATION
  3. DEPAKENE [Suspect]
     Indication: AFFECT LABILITY
  4. DEPAKENE [Suspect]
     Indication: PRODUCT USED FOR UNKNOWN INDICATION
     Route: 048
     Dates: end: 20110501

REACTIONS (12)
  - PYREXIA [None]
  - BRAIN OEDEMA [None]
  - HYPOTENSION [None]
  - SYNCOPE [None]
  - MECHANICAL VENTILATION COMPLICATION [None]
  - CARDIO-RESPIRATORY ARREST [None]
  - BLOOD CHOLESTEROL INCREASED [None]
  - HYPERTENSION [None]
  - HEADACHE [None]
  - CONVULSION [None]
  - COMA [None]
  - DIABETES MELLITUS [None]
